FAERS Safety Report 17943240 (Version 1)
Quarter: 2020Q2

REPORT INFORMATION
  Report Type: Spontaneous
  Country: US (occurrence: US)
  Receive Date: 20200625
  Receipt Date: 20200625
  Transmission Date: 20200714
  Serious: No
  Sender: FDA-Public Use
  Company Number: US-TEVA-2020-US-1790905

PATIENT
  Sex: Female

DRUGS (4)
  1. SEROQUEL [Concomitant]
     Active Substance: QUETIAPINE FUMARATE
     Dosage: AT BEDTIME
  2. BUPRENORPHINE. [Suspect]
     Active Substance: BUPRENORPHINE
     Indication: PAIN
     Dosage: 20 MCG/HOUR SINCE APPROXIMATELY 2018 (2 YEARS)
     Route: 062
  3. TOPAMAX [Concomitant]
     Active Substance: TOPIRAMATE
  4. METHOTREXATE. [Concomitant]
     Active Substance: METHOTREXATE
     Dosage: FORM OF ADMIN: INJECTABLE

REACTIONS (3)
  - Application site rash [Unknown]
  - Application site irritation [Unknown]
  - Application site pain [Unknown]
